FAERS Safety Report 23853456 (Version 1)
Quarter: 2024Q2

REPORT INFORMATION
  Report Type: Spontaneous
  Country: US (occurrence: US)
  Receive Date: 20240514
  Receipt Date: 20240514
  Transmission Date: 20240716
  Serious: Yes (Life-Threatening, Hospitalization, Other)
  Sender: FDA-Public Use
  Company Number: US-SUN PHARMACEUTICAL INDUSTRIES LTD-2024R1-445778

PATIENT
  Age: 61 Year
  Sex: Female

DRUGS (4)
  1. BUPROPION [Interacting]
     Active Substance: BUPROPION
     Indication: Premenstrual syndrome
     Dosage: UNK
     Route: 065
  2. FLUOXETINE [Interacting]
     Active Substance: FLUOXETINE HYDROCHLORIDE
     Indication: Premenstrual syndrome
     Dosage: UNK
     Route: 065
  3. METHYLENE BLUE [Interacting]
     Active Substance: METHYLENE BLUE
     Indication: Vasoplegia syndrome
     Dosage: 100 MILLIGRAM
     Route: 041
  4. MEPERIDINE [Interacting]
     Active Substance: MEPERIDINE
     Indication: Vasoplegia syndrome
     Dosage: 25 MILLIGRAM
     Route: 041

REACTIONS (2)
  - Serotonin syndrome [Unknown]
  - Drug interaction [Unknown]
